FAERS Safety Report 14983498 (Version 5)
Quarter: 2019Q1

REPORT INFORMATION
  Report Type: Report from Study
  Country: DE (occurrence: DE)
  Receive Date: 20180607
  Receipt Date: 20190211
  Transmission Date: 20190417
  Serious: Yes (Hospitalization, Other)
  Sender: FDA-Public Use
  Company Number: DE-PFIZER INC-2018226299

PATIENT
  Age: 79 Year
  Sex: Female
  Weight: 67 kg

DRUGS (35)
  1. ISOSORBIDE MONONITRATE. [Suspect]
     Active Substance: ISOSORBIDE MONONITRATE
     Indication: CORONARY ARTERY DISEASE
     Dosage: 20 MG, 1X/DAY
     Route: 048
     Dates: start: 20000218, end: 20000224
  2. TRAMAL [Suspect]
     Active Substance: TRAMADOL
     Dosage: 20 GTT, UNK
     Route: 048
     Dates: start: 20000223, end: 20000223
  3. EUSAPRIM [Suspect]
     Active Substance: SULFAMETHOXAZOLE\TRIMETHOPRIM
     Indication: URINARY TRACT INFECTION
  4. PHENHYDAN [Suspect]
     Active Substance: PHENYTOIN
     Dosage: UNK, 2X/DAY
     Route: 048
     Dates: start: 20000226, end: 20000227
  5. NORVASC [Suspect]
     Active Substance: AMLODIPINE BESYLATE
     Dosage: 1 DF, 1X/DAY
     Route: 048
     Dates: start: 20000130, end: 20000227
  6. EUSAPRIM [Suspect]
     Active Substance: SULFAMETHOXAZOLE\TRIMETHOPRIM
     Indication: CYSTITIS
     Dosage: 2 DF, 1X/DAY
     Route: 048
     Dates: start: 20000226, end: 20000227
  7. TRAMAL [Suspect]
     Active Substance: TRAMADOL
     Dosage: UNK, 5X DAILY
     Route: 048
     Dates: start: 20000219, end: 20000223
  8. DIAZEPAM. [Suspect]
     Active Substance: DIAZEPAM
     Dosage: 5 MG, 1X/DAY
     Route: 042
     Dates: start: 20000220, end: 20000220
  9. PHENHYDAN [Suspect]
     Active Substance: PHENYTOIN
     Dosage: UNK, 2X/DAY
     Route: 042
     Dates: start: 20000225, end: 20000226
  10. AMLODIPINE BESILATE [Suspect]
     Active Substance: AMLODIPINE BESYLATE
     Indication: CORONARY ARTERY DISEASE
     Dosage: 5 MG, 1X/DAY
     Route: 048
     Dates: start: 20000130, end: 20000220
  11. TRAMAL [Suspect]
     Active Substance: TRAMADOL
     Indication: PAIN
     Dosage: 20 GTT, UNK
     Route: 048
     Dates: start: 20000221, end: 20000221
  12. TRAMAL [Suspect]
     Active Substance: TRAMADOL
     Dosage: 20 GTT, UNK
     Route: 048
     Dates: start: 20000218, end: 20000218
  13. LASIX [Suspect]
     Active Substance: FUROSEMIDE
     Indication: CORONARY ARTERY DISEASE
     Dosage: 40 MG, 1X/DAY
     Route: 048
     Dates: start: 20000225, end: 20000227
  14. ISMO [Suspect]
     Active Substance: ISOSORBIDE MONONITRATE
     Indication: CORONARY ARTERY DISEASE
     Dosage: 20 MG, 1X/DAY
     Route: 048
     Dates: start: 20000225, end: 20000227
  15. FUROSEMID [Suspect]
     Active Substance: FUROSEMIDE
     Indication: OEDEMA
     Dosage: 40 MG, 1X/DAY
     Route: 048
     Dates: start: 20000130, end: 20000218
  16. ZANTAC [Suspect]
     Active Substance: RANITIDINE HYDROCHLORIDE
     Indication: GASTRIC ULCER
  17. RIVOTRIL [Suspect]
     Active Substance: CLONAZEPAM
     Indication: SEIZURE
     Dosage: 1 MG, 1X/DAY
     Route: 042
     Dates: start: 20000224, end: 20000224
  18. PHENHYDAN [Suspect]
     Active Substance: PHENYTOIN
     Dosage: 100 MG, UNK
     Route: 048
     Dates: start: 20000227, end: 20000227
  19. PHENHYDAN [Suspect]
     Active Substance: PHENYTOIN
     Dosage: 100 MG, UNK
     Route: 042
     Dates: start: 20000226, end: 20000226
  20. FUROSEMID [Suspect]
     Active Substance: FUROSEMIDE
     Dosage: UNK
     Route: 048
     Dates: start: 20000218, end: 20000224
  21. LUMINAL [Suspect]
     Active Substance: PHENOBARBITAL SODIUM
     Indication: SEIZURE
     Dosage: UNK
     Route: 030
     Dates: start: 20000225, end: 20000227
  22. ASPIRIN. [Suspect]
     Active Substance: ASPIRIN
     Indication: CORONARY ARTERY DISEASE
     Dosage: 100 MG, 1X/DAY
     Route: 048
     Dates: start: 20000130, end: 20000227
  23. TEGRETAL [Suspect]
     Active Substance: CARBAMAZEPINE
     Indication: SEIZURE
     Dosage: 600 MG, 1X/DAY
     Route: 048
     Dates: start: 20000125, end: 20000224
  24. CORANGIN [Suspect]
     Active Substance: ISOSORBIDE MONONITRATE
     Indication: CORONARY ARTERY DISEASE
     Dosage: 1 DF, DAILY
     Route: 048
     Dates: start: 20000218, end: 20000224
  25. ISOSORBIDE DINITRATE. [Suspect]
     Active Substance: ISOSORBIDE DINITRATE
     Indication: CORONARY ARTERY DISEASE
     Dosage: 1 DF, 1X/DAY
     Route: 048
     Dates: start: 20000130, end: 20000218
  26. FURORESE [Suspect]
     Active Substance: FUROSEMIDE
     Indication: OEDEMA
     Dosage: 40 MG, 1X/DAY
     Route: 048
     Dates: start: 20000218, end: 20000224
  27. RANITIC [Suspect]
     Active Substance: RANITIDINE HYDROCHLORIDE
     Indication: PROPHYLAXIS
  28. DIAZEPAM. [Suspect]
     Active Substance: DIAZEPAM
     Dosage: 5 MG, 1X/DAY
     Route: 042
     Dates: start: 20000225, end: 20000225
  29. PARACETAMOL [Concomitant]
     Active Substance: ACETAMINOPHEN
     Indication: PAIN
     Dosage: 1000 MG, DAILY
     Route: 054
     Dates: start: 20000226, end: 20000226
  30. RANITIC [Suspect]
     Active Substance: RANITIDINE HYDROCHLORIDE
     Indication: GASTRIC ULCER
     Dosage: 300 MG, 1X/DAY
     Route: 048
     Dates: start: 20000218, end: 20000224
  31. PHENHYDAN [Suspect]
     Active Substance: PHENYTOIN
     Indication: SEIZURE
     Dosage: 100 MG, UNK
     Route: 048
     Dates: start: 20000226, end: 20000226
  32. DIAZEPAM. [Suspect]
     Active Substance: DIAZEPAM
     Indication: SEIZURE
     Dosage: 5 MG, 1X/DAY
     Route: 042
     Dates: start: 20000218, end: 20000218
  33. PHENHYDAN [Suspect]
     Active Substance: PHENYTOIN
     Indication: SEIZURE
     Dosage: 250 MG, UNK
     Route: 042
     Dates: start: 20000225, end: 20000225
  34. ZANTAC [Suspect]
     Active Substance: RANITIDINE HYDROCHLORIDE
     Indication: PROPHYLAXIS
     Dosage: 300 MG, 1X/DAY
     Route: 048
     Dates: start: 20000225, end: 20000227
  35. BEN-U-RON [Concomitant]
     Active Substance: ACETAMINOPHEN
     Indication: PAIN
     Dosage: 1 DF, 1X/DAY
     Route: 054
     Dates: start: 20000226, end: 20000226

REACTIONS (11)
  - Eyelid oedema [Recovered/Resolved]
  - Blister [Recovered/Resolved]
  - Conjunctivitis [Recovered/Resolved]
  - Lip erosion [Recovered/Resolved]
  - Pruritus generalised [Recovered/Resolved]
  - Mucosal erosion [Recovered/Resolved]
  - Erythema [Recovered/Resolved]
  - Rash erythematous [Recovered/Resolved]
  - Stevens-Johnson syndrome [Recovered/Resolved]
  - Genital erosion [Recovered/Resolved]
  - Rash macular [Recovered/Resolved]

NARRATIVE: CASE EVENT DATE: 20000227
